FAERS Safety Report 8828063 (Version 1)
Quarter: 2012Q4

REPORT INFORMATION
  Report Type: 
  Country: US (occurrence: US)
  Receive Date: 20121005
  Receipt Date: 20121005
  Transmission Date: 20130627
  Serious: Yes (Other)
  Sender: FDA-Public Use
  Company Number: US-JNJFOC-20120911659

PATIENT
  Age: 28 Year
  Sex: Female
  Weight: 66.68 kg

DRUGS (1)
  1. REMICADE [Suspect]
     Indication: CROHN^S DISEASE
     Dosage: 300 mg
     Route: 042

REACTIONS (2)
  - Exposure during pregnancy [Not Recovered/Not Resolved]
  - Caesarean section [Not Recovered/Not Resolved]
